FAERS Safety Report 7959204-3 (Version None)
Quarter: 2011Q4

REPORT INFORMATION
  Report Type: 
  Country: None (occurrence: None)
  Receive Date: 20111206
  Receipt Date: 20111128
  Transmission Date: 20120403
  Serious: No
  Sender: FDA-Public Use
  Company Number: US-B.I. PHARMACEUTICALS,INC./RIDGEFIELD-2011-BP-26926BP

PATIENT
  Sex: Female

DRUGS (5)
  1. TOPROL-XL [Concomitant]
     Indication: HYPERTENSION
     Dosage: 25 MG
     Route: 048
     Dates: start: 20111112
  2. DIGOXIN [Concomitant]
     Indication: ATRIAL FIBRILLATION
     Dosage: 0.125 MG
     Route: 048
     Dates: start: 19930101
  3. VALIUM [Concomitant]
     Indication: ANXIETY
     Dosage: 2.5 MG
     Route: 048
  4. PRADAXA [Suspect]
     Indication: ATRIAL FIBRILLATION
     Dosage: 300 MG
     Route: 048
     Dates: start: 20111112
  5. AMOXICILLIN [Concomitant]
     Indication: SINUSITIS
     Dosage: 1500 MG
     Route: 048
     Dates: start: 20111120, end: 20111127

REACTIONS (8)
  - VISION BLURRED [None]
  - BLOOD GLUCOSE DECREASED [None]
  - ASTHENIA [None]
  - ANORECTAL DISCOMFORT [None]
  - DYSPEPSIA [None]
  - HAEMATOCHEZIA [None]
  - HEART RATE DECREASED [None]
  - DIARRHOEA [None]
